FAERS Safety Report 6366220-4 (Version None)
Quarter: 2009Q3

REPORT INFORMATION
  Report Type: 
  Country: None (occurrence: None)
  Receive Date: 20090915
  Receipt Date: 20090902
  Transmission Date: 20100115
  Serious: Yes (Hospitalization)
  Sender: FDA-Public Use
  Company Number: PHO-2009-016

PATIENT
  Age: 69 Year
  Sex: Female

DRUGS (1)
  1. PHOTOFRIN [Suspect]
     Indication: BILE DUCT CANCER
     Dosage: 131MG IV 1 TREATMENT
     Route: 042
     Dates: start: 20090112

REACTIONS (2)
  - ANGLE CLOSURE GLAUCOMA [None]
  - CHOLANGITIS [None]
